FAERS Safety Report 7057478-7 (Version None)
Quarter: 2010Q4

REPORT INFORMATION
  Report Type: 
  Country: None (occurrence: None)
  Receive Date: 20101022
  Receipt Date: 20101011
  Transmission Date: 20110411
  Serious: Yes (Other)
  Sender: FDA-Public Use
  Company Number: PHHY2010TH62606

PATIENT
  Age: 50 Year
  Sex: Female

DRUGS (2)
  1. ZOMETA [Suspect]
     Indication: METASTASES TO BONE
     Dosage: UNK
     Dates: end: 20100901
  2. AROMATASE INHIBITOR [Concomitant]
     Indication: METASTASES TO BONE

REACTIONS (3)
  - DENTAL CARIES [None]
  - OSTEONECROSIS OF JAW [None]
  - TOOTH LOSS [None]
